FAERS Safety Report 6054050-2 (Version None)
Quarter: 2009Q1

REPORT INFORMATION
  Report Type: 
  Country: None (occurrence: None)
  Receive Date: 20090127
  Receipt Date: 20090116
  Transmission Date: 20090719
  Serious: Yes (Hospitalization)
  Sender: FDA-Public Use
  Company Number: JP-AMGEN-US329519

PATIENT
  Age: 82 Year
  Sex: Male

DRUGS (1)
  1. ENBREL [Suspect]
     Indication: RHEUMATOID ARTHRITIS
     Dosage: UNKNOWN, SOLUTION FOR INJECTION
     Route: 058
     Dates: start: 20080626, end: 20090116

REACTIONS (3)
  - ABDOMINAL PAIN [None]
  - ILEUS [None]
  - PYREXIA [None]
